FAERS Safety Report 8499816-4 (Version None)
Quarter: 2012Q3

REPORT INFORMATION
  Report Type: 
  Country: None (occurrence: None)
  Receive Date: 20120710
  Receipt Date: 20120626
  Transmission Date: 20120928
  Serious: Yes (Other)
  Sender: FDA-Public Use
  Company Number: SK-009507513-1206USA04453

PATIENT

DRUGS (5)
  1. FLUTICASONE PROPIONATE [Concomitant]
     Dosage: 250 MICROGRAM, UNK
  2. CEZERA [Concomitant]
     Dosage: 1 DF, QD
  3. SINGULAIR [Suspect]
     Indication: RHINITIS ALLERGIC
     Dosage: 10 MG, UNK
     Route: 048
     Dates: start: 20110512, end: 20110615
  4. SINGULAIR [Suspect]
     Indication: ASTHMA
  5. FLUTICASONE FUROATE [Concomitant]
     Route: 055

REACTIONS (3)
  - NAUSEA [None]
  - VOMITING [None]
  - VERTIGO [None]
